FAERS Safety Report 11966305 (Version 1)
Quarter: 2016Q1

REPORT INFORMATION
  Report Type: Spontaneous
  Country: US (occurrence: None)
  Receive Date: 20160126
  Receipt Date: 20160126
  Transmission Date: 20160526
  Serious: Yes (Disabling)
  Sender: FDA-Public Use
  Company Number: None

PATIENT
  Age: 48 Year
  Sex: Female
  Weight: 103.87 kg

DRUGS (1)
  1. REMICADE [Suspect]
     Active Substance: INFLIXIMAB
     Indication: CROHN^S DISEASE
     Dosage: 100MG EVERY 4 WKS IV
     Route: 042
     Dates: start: 20150327, end: 20151230

REACTIONS (4)
  - Visual impairment [None]
  - Amnesia [None]
  - Dementia [None]
  - Dyspnoea [None]

NARRATIVE: CASE EVENT DATE: 20160106
